FAERS Safety Report 15654764 (Version 2)
Quarter: 2018Q4

REPORT INFORMATION
  Report Type: Spontaneous
  Country: FI (occurrence: FI)
  Receive Date: 20181126
  Receipt Date: 20181126
  Transmission Date: 20190205
  Serious: Yes (Other)
  Sender: FDA-Public Use
  Company Number: FI-TEVA-2018-FI-978490

PATIENT
  Sex: Female

DRUGS (1)
  1. VENLAFAXIN [Suspect]
     Active Substance: VENLAFAXINE HYDROCHLORIDE
     Indication: DEPRESSION
     Route: 065
     Dates: start: 2002

REACTIONS (32)
  - Tinnitus [Unknown]
  - Photopsia [Unknown]
  - Feeling of body temperature change [Unknown]
  - Diarrhoea [Unknown]
  - Muscle spasms [Unknown]
  - Withdrawal syndrome [Unknown]
  - Head discomfort [Unknown]
  - Restless legs syndrome [Unknown]
  - Aggression [Unknown]
  - Gastrointestinal pain [Unknown]
  - Palpitations [Unknown]
  - Decreased appetite [Unknown]
  - Irritability [Unknown]
  - Bruxism [Unknown]
  - Fear [Unknown]
  - Hyperacusis [Unknown]
  - Hypoaesthesia [Unknown]
  - Hepatic pain [Unknown]
  - Photophobia [Unknown]
  - Blood pressure increased [Unknown]
  - Visual impairment [Unknown]
  - Metamorphopsia [Unknown]
  - Restlessness [Unknown]
  - Loss of consciousness [Unknown]
  - Visual field defect [Unknown]
  - Hyperhidrosis [Unknown]
  - Abdominal pain [Unknown]
  - Fear of death [Unknown]
  - Malocclusion [Unknown]
  - Anger [Unknown]
  - Tooth fracture [Unknown]
  - Blood pressure decreased [Unknown]
